FAERS Safety Report 23953072 (Version 1)
Quarter: 2024Q2

REPORT INFORMATION
  Report Type: Spontaneous
  Country: US (occurrence: US)
  Receive Date: 20240608
  Receipt Date: 20240608
  Transmission Date: 20240716
  Serious: No
  Sender: FDA-Public Use
  Company Number: US-VIIV HEALTHCARE LIMITED-US2024AMR067829

PATIENT

DRUGS (2)
  1. RILPIVIRINE [Suspect]
     Active Substance: RILPIVIRINE
     Indication: Asymptomatic HIV infection
     Dosage: UNK, MO, CAB 600 MG(3 ML) AND RIL 900 MG(3ML), MO FIRST TWO MONTHS, THEN Q2M THEREAFTER
     Route: 030
  2. CABOTEGRAVIR [Suspect]
     Active Substance: CABOTEGRAVIR
     Indication: Asymptomatic HIV infection
     Dosage: UNK, MO, CAB 600 MG(3 ML) AND RIL 900 MG(3ML), MO FIRST TWO MONTHS, THEN Q2M THEREAFTER
     Route: 030

REACTIONS (2)
  - Alopecia [Unknown]
  - Product dose omission issue [Unknown]
